FAERS Safety Report 11536958 (Version 5)
Quarter: 2016Q2

REPORT INFORMATION
  Report Type: Report from Study
  Country: PT (occurrence: PT)
  Receive Date: 20150922
  Receipt Date: 20160427
  Transmission Date: 20160815
  Serious: Yes (Hospitalization, Other)
  Sender: FDA-Public Use
  Company Number: PL-ASTRAZENECA-2015SE89023

PATIENT
  Age: 30861 Day
  Sex: Male

DRUGS (8)
  1. PENTOXIFYLLINE. [Concomitant]
     Active Substance: PENTOXIFYLLINE
     Indication: PERIPHERAL ARTERIAL OCCLUSIVE DISEASE
     Dates: start: 20150426
  2. ATORVASTATIN [Concomitant]
     Active Substance: ATORVASTATIN
     Indication: DYSLIPIDAEMIA
  3. AZD6140 [Suspect]
     Active Substance: TICAGRELOR
     Indication: THROMBOSIS PROPHYLAXIS
     Route: 048
     Dates: start: 20150429, end: 20150826
  4. OMEPRAZOL [Concomitant]
     Active Substance: OMEPRAZOLE
     Dates: start: 20150426
  5. CARVEDILOL. [Concomitant]
     Active Substance: CARVEDILOL
     Dates: start: 20150426
  6. FERUMOXIDES [Concomitant]
     Active Substance: FERUMOXIDES NON-STOICHIOMETRIC MAGNETITE
     Indication: ANAEMIA
     Dates: start: 20150624
  7. ASA [Suspect]
     Active Substance: ASPIRIN
     Indication: THROMBOSIS PROPHYLAXIS
     Dosage: MAINTENANCE (NON-AZ PRODUCT)
     Route: 048
     Dates: start: 20150426, end: 20150529
  8. FUROSEMIDE. [Concomitant]
     Active Substance: FUROSEMIDE
     Indication: CARDIAC FAILURE
     Dates: start: 20150426

REACTIONS (2)
  - Anaemia [Not Recovered/Not Resolved]
  - Large intestine polyp [Not Recovered/Not Resolved]

NARRATIVE: CASE EVENT DATE: 20150624
